FAERS Safety Report 15116465 (Version 1)
Quarter: 2018Q3

REPORT INFORMATION
  Report Type: Spontaneous
  Country: KR (occurrence: KR)
  Receive Date: 20180706
  Receipt Date: 20180706
  Transmission Date: 20181010
  Serious: Yes (Life-Threatening, Other)
  Sender: FDA-Public Use
  Company Number: KR-BAUSCH-BL-2018-018437

PATIENT
  Age: 26 Day
  Sex: Female
  Weight: 2.92 kg

DRUGS (1)
  1. DOXYCYCLINE. [Suspect]
     Active Substance: DOXYCYCLINE
     Indication: VENOLYMPHATIC MALFORMATION
     Route: 065

REACTIONS (1)
  - Drug ineffective [Unknown]
